FAERS Safety Report 7875150-8 (Version None)
Quarter: 2011Q4

REPORT INFORMATION
  Report Type: 
  Country: None (occurrence: None)
  Receive Date: 20111031
  Receipt Date: 20111018
  Transmission Date: 20120403
  Serious: No
  Sender: FDA-Public Use
  Company Number: US-BIOGENIDEC-2011BI039957

PATIENT
  Sex: Female

DRUGS (6)
  1. AVONEX [Suspect]
     Indication: MULTIPLE SCLEROSIS
     Route: 030
     Dates: start: 20110901
  2. EXCEDRIN (MIGRAINE) [Concomitant]
     Indication: PRODUCT USED FOR UNKNOWN INDICATION
  3. IBUPROFEN [Concomitant]
     Indication: PRODUCT USED FOR UNKNOWN INDICATION
  4. HYDROCHLOROTHIAZIDE [Concomitant]
     Indication: HYPERTENSION
     Dates: start: 20100101
  5. AVONEX [Suspect]
     Route: 030
     Dates: start: 20100901, end: 20110601
  6. EPIPEN [Concomitant]
     Indication: HYPERSENSITIVITY

REACTIONS (16)
  - CYSTITIS [None]
  - HAEMATOCHEZIA [None]
  - BACK PAIN [None]
  - HYPERSENSITIVITY [None]
  - BLOOD CHOLESTEROL INCREASED [None]
  - ENZYME ABNORMALITY [None]
  - SINUSITIS [None]
  - ARTHRALGIA [None]
  - PNEUMONIA [None]
  - ALLERGY TO ANIMAL [None]
  - ANIMAL SCRATCH [None]
  - HOUSE DUST ALLERGY [None]
  - BLOOD PRESSURE INCREASED [None]
  - OSTEOPOROSIS [None]
  - DIZZINESS [None]
  - WOUND [None]
